FAERS Safety Report 4819017-8 (Version None)
Quarter: 2005Q4

REPORT INFORMATION
  Report Type: 
  Country: None (occurrence: None)
  Receive Date: 20051103
  Receipt Date: 20051024
  Transmission Date: 20060501
  Serious: Yes (Hospitalization)
  Sender: FDA-Public Use
  Company Number: US-KINGPHARMUSA00001-K200501405

PATIENT
  Age: 34 Year
  Sex: Female

DRUGS (7)
  1. ALTACE [Suspect]
     Indication: HYPERTENSION
     Dosage: 5 MG, QD
     Route: 048
  2. DEPAKOTE [Suspect]
     Indication: DEPRESSION
     Dosage: 1,500 MG, QD
     Route: 048
  3. REBOXETINE [Concomitant]
     Indication: DEPRESSION
     Dosage: 12 MG, QD
     Route: 048
  4. ZOLPIDEM [Concomitant]
     Indication: DEPRESSION
     Dosage: 10 MG, QD
     Route: 048
  5. LIOTHYRONINE SODIUM [Concomitant]
     Indication: DEPRESSION
     Dosage: 25 MCG, QD
     Route: 048
  6. METHYLDOPA [Concomitant]
     Indication: HYPERTENSION
  7. NIFEDIPINE [Concomitant]
     Indication: HYPERTENSION

REACTIONS (8)
  - CAESAREAN SECTION [None]
  - DEPRESSION [None]
  - DRUG EXPOSURE DURING PREGNANCY [None]
  - HYPERTENSION [None]
  - INFLUENZA LIKE ILLNESS [None]
  - POSTPARTUM DISORDER [None]
  - PREGNANCY [None]
  - PREMATURE LABOUR [None]
